FAERS Safety Report 8189873-7 (Version None)
Quarter: 2012Q1

REPORT INFORMATION
  Report Type: 
  Country: None (occurrence: None)
  Receive Date: 20120307
  Receipt Date: 20120228
  Transmission Date: 20120608
  Serious: Yes (Hospitalization)
  Sender: FDA-Public Use
  Company Number: US-BAYER-2011-031833

PATIENT
  Age: 42 Year
  Sex: Female
  Weight: 52.154 kg

DRUGS (3)
  1. YAZ [Suspect]
     Indication: CONTRACEPTION
     Dosage: UNK
     Dates: start: 20050101, end: 20070601
  2. MELOXICAM [Concomitant]
     Dosage: 7.5 MG, UNK
     Route: 048
     Dates: start: 20070611
  3. KLOR-CON M20 [Concomitant]
     Dosage: UNK
     Route: 048
     Dates: start: 20070607

REACTIONS (1)
  - DEEP VEIN THROMBOSIS [None]
